FAERS Safety Report 9225038 (Version 1)
Quarter: 2013Q2

REPORT INFORMATION
  Report Type: Spontaneous
  Country: US (occurrence: None)
  Receive Date: 20130410
  Receipt Date: 20130410
  Transmission Date: 20140414
  Serious: Yes (Death, Hospitalization)
  Sender: FDA-Public Use
  Company Number: None

PATIENT
  Age: 77 Year
  Sex: Male
  Weight: 95 kg

DRUGS (2)
  1. CYTARABINE [Suspect]
     Dates: end: 20120426
  2. DAUNORUBICIN [Suspect]
     Dates: end: 20120422

REACTIONS (4)
  - Hypothermia [None]
  - Mental status changes [None]
  - Wheezing [None]
  - Hypercapnia [None]
